FAERS Safety Report 7018561-5 (Version None)
Quarter: 2010Q3

REPORT INFORMATION
  Report Type: 
  Country: None (occurrence: None)
  Receive Date: 20100928
  Receipt Date: 20100920
  Transmission Date: 20110219
  Serious: Yes (Life-Threatening, Hospitalization)
  Sender: FDA-Public Use
  Company Number: US-WYE-H17735710

PATIENT
  Age: 67 Year
  Sex: Male

DRUGS (12)
  1. AMIODARONE [Suspect]
     Indication: CARDIAC FAILURE CONGESTIVE
  2. MILRINONE [Concomitant]
     Dosage: MAINTAINED ON 0.375 MCG/KG/MIN FOR THE LAST 40 DAYS
  3. ASPIRIN [Concomitant]
  4. LISINOPRIL [Concomitant]
  5. LEVOTHYROXINE SODIUM [Concomitant]
  6. SIMVASTATIN [Concomitant]
  7. ALLOPURINOL [Concomitant]
  8. LASIX [Concomitant]
  9. IRON [Concomitant]
  10. PANTOPRAZOLE [Concomitant]
  11. DIGOXIN [Concomitant]
  12. CLOPIDOGREL [Concomitant]

REACTIONS (3)
  - CONDITION AGGRAVATED [None]
  - HYPOTHYROIDISM [None]
  - MYXOEDEMA COMA [None]
